FAERS Safety Report 26090057 (Version 1)
Quarter: 2025Q4

REPORT INFORMATION
  Report Type: Report from Study
  Country: CA (occurrence: CA)
  Receive Date: 20251126
  Receipt Date: 20251126
  Transmission Date: 20260117
  Serious: Yes (Other)
  Sender: ABBVIE
  Company Number: CA-ABBVIE-6560703

PATIENT
  Age: 45 Year
  Sex: Female

DRUGS (1)
  1. RINVOQ [Suspect]
     Active Substance: UPADACITINIB
     Indication: Crohn^s disease
     Dosage: LAST DOSE DATE: 18 NOV 2025
     Route: 048
     Dates: start: 20251111

REACTIONS (2)
  - Stoma creation [Unknown]
  - Product residue present [Unknown]

NARRATIVE: CASE EVENT DATE: 20251101
